FAERS Safety Report 7441507-2 (Version None)
Quarter: 2011Q2

REPORT INFORMATION
  Report Type: 
  Country: None (occurrence: None)
  Receive Date: 20110418
  Receipt Date: 20110405
  Transmission Date: 20111010
  Serious: Yes (Other)
  Sender: FDA-Public Use
  Company Number: B0713017A

PATIENT
  Sex: 0

DRUGS (2)
  1. MELPHALAN HYDROCHLORIDE [Suspect]
     Indication: MALIGNANT MELANOMA
     Dosage: 10 MG/LITRE / SEE TEXT
  2. UNKNOWN (FORMULATION UNKNOWN) (UNKNOWN) [Suspect]
     Indication: MALIGNANT MELANOMA
     Dosage: INTRAVENOUS
     Route: 042

REACTIONS (7)
  - FEMORAL ARTERY DISSECTION [None]
  - AMPUTATION [None]
  - FEMORAL ARTERY EMBOLISM [None]
  - ARTERIAL INJURY [None]
  - MEDICAL DEVICE COMPLICATION [None]
  - TOXICITY TO VARIOUS AGENTS [None]
  - ANGIOPATHY [None]
